FAERS Safety Report 17163618 (Version 2)
Quarter: 2019Q4

REPORT INFORMATION
  Report Type: Spontaneous
  Country: JP (occurrence: JP)
  Receive Date: 20191217
  Receipt Date: 20191220
  Transmission Date: 20200122
  Serious: Yes (Death, Other)
  Sender: FDA-Public Use
  Company Number: JP-PFIZER INC-2019543896

PATIENT
  Age: 56 Year
  Sex: Male

DRUGS (12)
  1. THYRADIN S [Concomitant]
     Active Substance: LEVOTHYROXINE SODIUM
     Dosage: 25 UG, 1X/DAY (AFTER BREAKFAST) FOR 28 DAYS
     Route: 048
  2. ALFACALCIDOL [Concomitant]
     Active Substance: ALFACALCIDOL
     Dosage: 0.5 UG, 1X/DAY (AFTER BREAKFAST) FOR 28 DAYS
     Route: 048
  3. FOSRENOL [Concomitant]
     Active Substance: LANTHANUM CARBONATE
     Dosage: 500 MG, 3X/DAY (AFTER MEALS) FOR 28 DAYS
     Route: 048
  4. HALIZON [Concomitant]
     Active Substance: AMPHOTERICIN B
     Dosage: 1 ML, 2X/DAY (AFTER BREAKFAST AND SUPPER) FOR 28 DAYS
     Route: 048
  5. NEXIUM [Concomitant]
     Active Substance: ESOMEPRAZOLE MAGNESIUM
     Dosage: 20 MG, 1X/DAY (AFTER BREAKFAST) FOR 28 DAYS
     Route: 048
  6. CALONAL [Concomitant]
     Active Substance: ACETAMINOPHEN
     Dosage: 600 MG, 4X/DAY (AFTER MEALS AND BEFORE BED TIME) FOR 28 DAYS
     Route: 048
  7. INLYTA [Suspect]
     Active Substance: AXITINIB
     Dosage: 2 MG, 2X/DAY (AFTER BREAKFAST AND SUPPER) FOR 28 DAYS ON
     Route: 048
  8. PRECIPITATED CALCIUM CARBONATE [Concomitant]
     Active Substance: CALCIUM CARBONATE
     Dosage: 500 MG, 3X/DAY (AFTER MEALS) FOR 28 DAYS
     Route: 048
  9. ORKEDIA [Concomitant]
     Dosage: 2 MG, 1X/DAY (AFTER BREAKFAST) FOR 28 DAYS
     Route: 048
  10. LOPERAMIDE HCL [Concomitant]
     Active Substance: LOPERAMIDE HYDROCHLORIDE
     Indication: DIARRHOEA
     Dosage: 1 MG, AS NEEDED (BASIS FOR 20 TIMES)
  11. AMLODIPINE BESILATE [Concomitant]
     Active Substance: AMLODIPINE BESYLATE
     Dosage: 2.5 MG, 1X/DAY (AFTER BREAKFAST) FOR 28 DAYS
     Route: 048
  12. CORTRIL [Concomitant]
     Active Substance: HYDROCORTISONE
     Dosage: 15 MG, DAILY (1.5 TABLETS) DIVIDED INTO 2 DOSES (AFTER BREAK FAST AND LUNCH) FOR 28 DAYS
     Route: 048

REACTIONS (1)
  - Death [Fatal]

NARRATIVE: CASE EVENT DATE: 20191211
